FAERS Safety Report 23314587 (Version 3)
Quarter: 2023Q4

REPORT INFORMATION
  Report Type: Spontaneous
  Country: JP (occurrence: JP)
  Receive Date: 20231219
  Receipt Date: 20231226
  Transmission Date: 20240110
  Serious: Yes (Other)
  Sender: FDA-Public Use
  Company Number: JP-BRISTOL-MYERS SQUIBB COMPANY-2023-182907

PATIENT
  Age: 81 Year
  Sex: Male

DRUGS (5)
  1. YERVOY [Suspect]
     Active Substance: IPILIMUMAB
     Indication: Oesophageal carcinoma
     Route: 041
     Dates: start: 202303
  2. YERVOY [Suspect]
     Active Substance: IPILIMUMAB
     Route: 041
     Dates: start: 202306
  3. OPDIVO [Suspect]
     Active Substance: NIVOLUMAB
     Indication: Oesophageal carcinoma
     Dates: start: 202303
  4. OPDIVO [Suspect]
     Active Substance: NIVOLUMAB
     Dates: start: 202306
  5. OPDIVO [Suspect]
     Active Substance: NIVOLUMAB
     Dosage: MONOTHERAPY
     Dates: start: 202308

REACTIONS (3)
  - Immune-mediated adrenal insufficiency [Recovering/Resolving]
  - Polymyalgia rheumatica [Recovering/Resolving]
  - Acquired tracheo-oesophageal fistula [Unknown]
